FAERS Safety Report 10552766 (Version 2)
Quarter: 2015Q1

REPORT INFORMATION
  Report Type: Spontaneous
  Country: US (occurrence: US)
  Receive Date: 20141029
  Receipt Date: 20150325
  Transmission Date: 20150720
  Serious: No
  Sender: FDA-Public Use
  Company Number: US-MYLANLABS-2014S1014217

PATIENT
  Age: 72 Year
  Sex: Female
  Weight: 73.94 kg

DRUGS (4)
  1. CARVEDILOL TABLETS, USP [Suspect]
     Active Substance: CARVEDILOL
     Indication: BLOOD PRESSURE
     Dosage: 3.125 MG,BID
     Route: 048
     Dates: start: 2012
  2. CHLORTHALIDONE TABLETS USP [Suspect]
     Active Substance: CHLORTHALIDONE
     Indication: BLOOD PRESSURE
     Dosage: 25 MG,QD
     Route: 048
     Dates: start: 2012
  3. LOSARTAN POTASSIUM TABLETS USP [Suspect]
     Active Substance: LOSARTAN POTASSIUM
     Indication: BLOOD PRESSURE
     Dosage: 100 MG,QD
     Route: 048
     Dates: start: 2012
  4. AMLODIPINE BESILATE TABLETS [Suspect]
     Active Substance: AMLODIPINE BESYLATE
     Indication: BLOOD PRESSURE
     Dosage: 2.5 MG,QD
     Route: 048
     Dates: start: 2012

REACTIONS (1)
  - Acne [Not Recovered/Not Resolved]

NARRATIVE: CASE EVENT DATE: 201205
